FAERS Safety Report 17744632 (Version 2)
Quarter: 2020Q2

REPORT INFORMATION
  Report Type: Spontaneous
  Country: IN (occurrence: IN)
  Receive Date: 20200505
  Receipt Date: 20200518
  Transmission Date: 20200714
  Serious: Yes (Hospitalization)
  Sender: FDA-Public Use
  Company Number: IN-ELI_LILLY_AND_COMPANY-IN202004011683

PATIENT
  Age: 28 Year
  Sex: Male

DRUGS (1)
  1. OLANZAPINE. [Suspect]
     Active Substance: OLANZAPINE
     Indication: PSYCHOTIC DISORDER
     Dosage: 10 MG, DAILY
     Route: 065
     Dates: start: 2004

REACTIONS (7)
  - Toxicity to various agents [Recovering/Resolving]
  - Foaming at mouth [Recovering/Resolving]
  - Hypotension [Recovering/Resolving]
  - Hyperpyrexia [Recovering/Resolving]
  - Diabetic ketoacidosis [Recovering/Resolving]
  - Extrapyramidal disorder [Recovering/Resolving]
  - Coma [Recovering/Resolving]
